FAERS Safety Report 16690539 (Version 1)
Quarter: 2019Q3

REPORT INFORMATION
  Report Type: Spontaneous
  Country: CA (occurrence: CA)
  Receive Date: 20190810
  Receipt Date: 20190810
  Transmission Date: 20191004
  Serious: Yes (Other)
  Sender: FDA-Public Use
  Company Number: CA-ABBVIE-19K-028-2882364-00

PATIENT
  Sex: Female

DRUGS (3)
  1. LUPRON [Suspect]
     Active Substance: LEUPROLIDE ACETATE
     Indication: PRODUCT USED FOR UNKNOWN INDICATION
     Dosage: LIQUID SUBCUTANEOUS
     Route: 065
  2. FIBRISTAL [Suspect]
     Active Substance: ULIPRISTAL
     Indication: UTERINE LEIOMYOMA
     Route: 048
  3. FIBRISTAL [Suspect]
     Active Substance: ULIPRISTAL
     Indication: MENORRHAGIA

REACTIONS (2)
  - Liver function test increased [Recovering/Resolving]
  - Drug ineffective [Recovering/Resolving]
